FAERS Safety Report 12843309 (Version 1)
Quarter: 2016Q4

REPORT INFORMATION
  Report Type: Spontaneous
  Country: US (occurrence: US)
  Receive Date: 20161013
  Receipt Date: 20161013
  Transmission Date: 20170207
  Serious: No
  Sender: FDA-Public Use
  Company Number: US-ACTAVIS-2015-21186

PATIENT
  Age: 75 Year
  Sex: Male

DRUGS (2)
  1. GABAPENTIN (AELLC) [Suspect]
     Active Substance: GABAPENTIN
     Indication: PAIN
     Dosage: 600 MG, TID
     Route: 048
     Dates: start: 20150927
  2. GABAPENTIN (AELLC) [Suspect]
     Active Substance: GABAPENTIN
     Dosage: 300 MG, BID
     Route: 048
     Dates: start: 20150914, end: 20150927

REACTIONS (2)
  - Dizziness [Not Recovered/Not Resolved]
  - Drug ineffective [Recovered/Resolved]

NARRATIVE: CASE EVENT DATE: 20150914
